FAERS Safety Report 25785798 (Version 2)
Quarter: 2025Q3

REPORT INFORMATION
  Report Type: Spontaneous
  Country: EU (occurrence: EU)
  Receive Date: 20250910
  Receipt Date: 20250922
  Transmission Date: 20251021
  Serious: Yes (Other)
  Sender: AUROBINDO
  Company Number: EU-CHEPLA-2025009989

PATIENT
  Age: 36 Year
  Sex: Female

DRUGS (4)
  1. OLANZAPINE [Suspect]
     Active Substance: OLANZAPINE
     Indication: Mental disorder
     Route: 065
  2. FLUOXETINE [Suspect]
     Active Substance: FLUOXETINE HYDROCHLORIDE
     Indication: Mental disorder
     Route: 065
  3. MIRTAZAPINE [Suspect]
     Active Substance: MIRTAZAPINE
     Indication: Mental disorder
     Route: 065
  4. TEMAZEPAM [Suspect]
     Active Substance: TEMAZEPAM
     Indication: Mental disorder
     Route: 065

REACTIONS (3)
  - Schizoaffective disorder [Recovering/Resolving]
  - Depression [Recovering/Resolving]
  - Off label use [Unknown]
